FAERS Safety Report 21755630 (Version 1)
Quarter: 2022Q4

REPORT INFORMATION
  Report Type: Report from Study
  Country: US (occurrence: US)
  Receive Date: 20221220
  Receipt Date: 20221220
  Transmission Date: 20230113
  Serious: Yes (Hospitalization, Other)
  Sender: FDA-Public Use
  Company Number: US-ABBVIE-4242538

PATIENT
  Age: 58 Year
  Sex: Female

DRUGS (1)
  1. IMBRUVICA [Suspect]
     Active Substance: IBRUTINIB
     Indication: Chronic lymphocytic leukaemia
     Route: 048
     Dates: start: 20220414

REACTIONS (5)
  - Blindness [Recovering/Resolving]
  - Eye inflammation [Recovering/Resolving]
  - Headache [Recovering/Resolving]
  - Retinal detachment [Unknown]
  - Eye oedema [Recovering/Resolving]

NARRATIVE: CASE EVENT DATE: 20221101
